FAERS Safety Report 5537489-0 (Version None)
Quarter: 2007Q4

REPORT INFORMATION
  Report Type: 
  Country: None (occurrence: None)
  Receive Date: 20071207
  Receipt Date: 20071204
  Transmission Date: 20080405
  Serious: Yes (Hospitalization)
  Sender: FDA-Public Use
  Company Number: FR-ASTRAZENECA-2007CG01717

PATIENT
  Age: 41 Year
  Sex: Female

DRUGS (4)
  1. MOPRAL [Suspect]
     Route: 048
     Dates: start: 20070803
  2. KETOPROFEN [Suspect]
     Indication: SCIATICA
     Route: 048
     Dates: start: 20070803, end: 20070808
  3. VOLTAREN [Suspect]
     Indication: SCIATICA
     Route: 030
     Dates: start: 20070808, end: 20070808
  4. FELDENE [Suspect]
     Indication: SCIATICA
     Route: 030
     Dates: start: 20070809, end: 20070816

REACTIONS (6)
  - HEPATIC FUNCTION ABNORMAL [None]
  - HEPATITIS CHOLESTATIC [None]
  - PANCREATIC ENZYMES INCREASED [None]
  - PELVIC FLUID COLLECTION [None]
  - PLEURAL EFFUSION [None]
  - PYREXIA [None]
